FAERS Safety Report 13372526 (Version 1)
Quarter: 2017Q1

REPORT INFORMATION
  Report Type: Other
  Country: CA (occurrence: CA)
  Receive Date: 20170327
  Receipt Date: 20170327
  Transmission Date: 20170429
  Serious: Yes (Other)
  Sender: FDA-Public Use
  Company Number: CA-HETERO LABS LTD-1064663

PATIENT
  Age: 7 Day
  Sex: Male

DRUGS (1)
  1. INDOMETHACIN. [Suspect]
     Active Substance: INDOMETHACIN
     Indication: DIGEORGE^S SYNDROME
     Route: 065

REACTIONS (6)
  - Femoral pulse abnormal [Recovered/Resolved]
  - Left ventricular dysfunction [Recovered/Resolved]
  - Femoral pulse decreased [Recovered/Resolved]
  - Respiratory distress [Recovered/Resolved]
  - Coarctation of the aorta [Recovered/Resolved]
  - Neonatal respiratory distress syndrome [None]
